FAERS Safety Report 7807177-6 (Version None)
Quarter: 2011Q4

REPORT INFORMATION
  Report Type: 
  Country: None (occurrence: None)
  Receive Date: 20111011
  Receipt Date: 20110929
  Transmission Date: 20120403
  Serious: Yes (Other)
  Sender: FDA-Public Use
  Company Number: PHEH2011US05479

PATIENT
  Sex: Female

DRUGS (6)
  1. ASPIRIN [Concomitant]
  2. DIOVAN HCT [Suspect]
     Dosage: 1 DF, QD (160/12.5 MG)
  3. BYETTA [Concomitant]
  4. PRILOSEC [Concomitant]
  5. LIPITOR [Concomitant]
  6. ANTERUS [Concomitant]

REACTIONS (1)
  - DIABETES MELLITUS [None]
